FAERS Safety Report 7690836-6 (Version None)
Quarter: 2011Q3

REPORT INFORMATION
  Report Type: 
  Country: None (occurrence: None)
  Receive Date: 20110818
  Receipt Date: 20110804
  Transmission Date: 20111222
  Serious: Yes (Other)
  Sender: FDA-Public Use
  Company Number: DE-UCBSA-038713

PATIENT
  Sex: Male
  Weight: 2.23 kg

DRUGS (5)
  1. CIMZIA [Suspect]
     Indication: RHEUMATOID ARTHRITIS
     Dosage: UNKNOWN DOSE, RECEIVED ONE OR TWO INJECTIONS
     Route: 064
  2. ARCOXIA [Concomitant]
     Indication: RHEUMATOID ARTHRITIS
     Dosage: 90 MG/DAY
     Route: 064
     Dates: start: 20090101, end: 20100831
  3. PREDNISOLONE [Concomitant]
     Indication: RHEUMATOID ARTHRITIS
     Dosage: 2.5 MG/DAY
     Route: 064
     Dates: start: 20070101, end: 20110313
  4. METHOTREXATE [Concomitant]
     Indication: RHEUMATOID ARTHRITIS
     Route: 064
     Dates: start: 20090101, end: 20100831
  5. PREDNISOLONE [Concomitant]
     Dosage: 2.5 MG/DAY
     Route: 063
     Dates: start: 20070101

REACTIONS (3)
  - PREMATURE BABY [None]
  - MATERNAL EXPOSURE DURING PREGNANCY [None]
  - SMALL FOR DATES BABY [None]
